FAERS Safety Report 7832215-4 (Version None)
Quarter: 2011Q4

REPORT INFORMATION
  Report Type: 
  Country: None (occurrence: None)
  Receive Date: 20111022
  Receipt Date: 20110221
  Transmission Date: 20120403
  Serious: No
  Sender: FDA-Public Use
  Company Number: US-BAYER-2011-002743

PATIENT
  Age: 61 Year
  Sex: Female

DRUGS (18)
  1. AMBIEN [Concomitant]
     Dosage: UNK UNK, HS
     Dates: start: 20090709, end: 20100119
  2. NEXAVAR [Suspect]
     Dosage: 200 MG, UNK
  3. PRAVASTATIN [Concomitant]
     Dosage: UNK UNK, HS
     Dates: start: 20090706
  4. NEXAVAR [Suspect]
     Dosage: 200 MG, BID
     Dates: end: 20110512
  5. ACTOS [Concomitant]
     Dosage: UNK
     Dates: start: 20110122
  6. IMODIUM [Concomitant]
     Dosage: UNK
     Dates: start: 20100709
  7. LISINOPRIL [Concomitant]
     Dosage: 2 DF, QD
     Dates: start: 20090706, end: 20100805
  8. ACTOS [Concomitant]
     Dosage: 1 DF, QD
     Dates: start: 20090706
  9. CALCIUM CARBONATE [Concomitant]
     Dosage: 700 MG, UNK
     Dates: start: 20090706, end: 20100119
  10. SUTENT [Concomitant]
     Dosage: UNK
     Dates: end: 20100119
  11. ASPIRIN [Concomitant]
     Dosage: UNK UNK, QD
     Dates: start: 20090706
  12. VITAMIN D [Concomitant]
     Dosage: UNK
     Dates: start: 20100604
  13. VITAMIN D [Concomitant]
     Dosage: UNK UNK, QD
     Dates: start: 20090706, end: 20100119
  14. OMEPRAZOLE [Concomitant]
     Dosage: UNK UNK, QD
     Dates: start: 20090812
  15. NEXAVAR [Suspect]
     Indication: RENAL CANCER
     Dosage: 200 MG, BID
     Route: 048
  16. COUMADIN [Concomitant]
     Dosage: UNK UNK, QD
     Dates: end: 20100805
  17. METOPROLOL TARTRATE [Concomitant]
     Dosage: 1 DF, BID
     Dates: start: 20090706
  18. ATIVAN [Concomitant]
     Dosage: UNK UNK, PRN
     Dates: start: 20090706

REACTIONS (16)
  - SWELLING FACE [None]
  - OROPHARYNGEAL PAIN [None]
  - DECREASED APPETITE [None]
  - DIARRHOEA [None]
  - VOMITING [None]
  - MUSCULOSKELETAL STIFFNESS [None]
  - HEADACHE [None]
  - CHILLS [None]
  - TONGUE DISORDER [None]
  - INFECTION [None]
  - FAECES DISCOLOURED [None]
  - ABDOMINAL PAIN UPPER [None]
  - PYREXIA [None]
  - NAUSEA [None]
  - INFLUENZA LIKE ILLNESS [None]
  - PALMAR-PLANTAR ERYTHRODYSAESTHESIA SYNDROME [None]
